FAERS Safety Report 25252639 (Version 1)
Quarter: 2025Q2

REPORT INFORMATION
  Report Type: Other
  Country: US (occurrence: US)
  Receive Date: 20250429
  Receipt Date: 20250429
  Transmission Date: 20250716
  Serious: Yes (Other)
  Sender: VERITY PHARMACEUTICALS INC.
  Company Number: US-VER-202400367

PATIENT
  Age: 5 Year
  Sex: Female

DRUGS (1)
  1. TRIPTORELIN [Suspect]
     Active Substance: TRIPTORELIN
     Indication: Precocious puberty
     Route: 058

REACTIONS (1)
  - Hypertension [Unknown]
